FAERS Safety Report 25557359 (Version 3)
Quarter: 2025Q3

REPORT INFORMATION
  Report Type: Spontaneous
  Country: JP (occurrence: JP)
  Receive Date: 20250715
  Receipt Date: 20250811
  Transmission Date: 20251020
  Serious: Yes (Other)
  Sender: AMGEN
  Company Number: JP-AMGEN-JPNSP2025135950

PATIENT
  Age: 88 Year
  Sex: Female
  Weight: 42 kg

DRUGS (9)
  1. EVENITY [Suspect]
     Active Substance: ROMOSOZUMAB-AQQG
     Indication: Osteoporosis
     Route: 058
     Dates: start: 20250228, end: 20250628
  2. BETAHISTINE MESILATE [Concomitant]
     Active Substance: BETAHISTINE MESILATE
     Dates: start: 20250222, end: 20250707
  3. LOXOPROFEN SODIUM [Concomitant]
     Active Substance: LOXOPROFEN SODIUM
     Dates: start: 20250226, end: 20250707
  4. ALFACALCIDOL [Concomitant]
     Active Substance: ALFACALCIDOL
     Dates: start: 20250227, end: 20250707
  5. REBAMIPIDE [Concomitant]
     Active Substance: REBAMIPIDE
     Dates: start: 20250222, end: 20250707
  6. EDOXABAN TOSYLATE [Concomitant]
     Active Substance: EDOXABAN TOSYLATE
     Route: 048
     Dates: start: 20250610, end: 20250707
  7. MAGNESIUM OXIDE [Concomitant]
     Active Substance: MAGNESIUM OXIDE
     Dates: start: 20250405, end: 20250705
  8. NIFEDIPINE [Concomitant]
     Active Substance: NIFEDIPINE
     Dates: start: 20250629, end: 20250630
  9. DAYVIGO [Concomitant]
     Active Substance: LEMBOREXANT
     Dates: start: 20250625

REACTIONS (2)
  - Hyponatraemia [Not Recovered/Not Resolved]
  - Inappropriate antidiuretic hormone secretion [Unknown]

NARRATIVE: CASE EVENT DATE: 20250701
